FAERS Safety Report 8196551-7 (Version None)
Quarter: 2012Q1

REPORT INFORMATION
  Report Type: 
  Country: None (occurrence: None)
  Receive Date: 20120309
  Receipt Date: 20120302
  Transmission Date: 20120608
  Serious: Yes (Hospitalization)
  Sender: FDA-Public Use
  Company Number: JP-BRISTOL-MYERS SQUIBB COMPANY-16309395

PATIENT
  Age: 41 Year
  Sex: Female

DRUGS (10)
  1. ORENCIA [Suspect]
     Indication: RHEUMATOID ARTHRITIS
     Dosage: 10MAR2011,44KG.
     Route: 042
     Dates: start: 20110224
  2. VOLTAREN [Concomitant]
     Indication: RHEUMATOID ARTHRITIS
  3. LENDORMIN [Concomitant]
     Indication: INSOMNIA
  4. OMEPRAZOLE [Concomitant]
     Indication: PROPHYLAXIS
  5. PRORENAL [Concomitant]
     Indication: PERIPHERAL VASCULAR DISORDER
  6. PREDNISOLONE [Concomitant]
     Indication: RHEUMATOID ARTHRITIS
     Dosage: 45MG,08APR11-13MAY11
     Route: 048
     Dates: end: 20110513
  7. ATARAX [Concomitant]
     Indication: URTICARIA
  8. TOYOFAROL [Concomitant]
     Indication: OSTEOPOROSIS
  9. SELBEX [Concomitant]
     Indication: PROPHYLAXIS
  10. JUVELA [Concomitant]
     Indication: PERIPHERAL VASCULAR DISORDER

REACTIONS (1)
  - RHEUMATOID VASCULITIS [None]
